FAERS Safety Report 9178335 (Version 1)
Quarter: 2012Q4

REPORT INFORMATION
  Report Type: 
  Country: BR (occurrence: BR)
  Receive Date: 20121029
  Receipt Date: 20121029
  Transmission Date: 20130627
  Serious: Yes (Other)
  Sender: FDA-Public Use
  Company Number: BR-SANOFI-AVENTIS-2012SA077819

PATIENT
  Age: 68 Year
  Sex: Male
  Weight: 72 kg

DRUGS (6)
  1. LANTUS [Suspect]
     Indication: TYPE 2 DIABETES MELLITUS
     Route: 058
  2. AUTOPEN 24 [Suspect]
     Indication: DEVICE THERAPY
  3. LYRICA [Concomitant]
     Indication: DIABETIC NEUROPATHY
     Dosage: 1 tab in morning
     Route: 048
  4. LYRICA [Concomitant]
     Indication: DIABETIC NEUROPATHY
     Dosage: 1 tab at night
     Route: 048
  5. THIOCTACID [Concomitant]
     Indication: DIABETIC NEUROPATHY
     Route: 048
  6. NOVORAPID [Concomitant]
     Indication: TYPE 2 DIABETES MELLITUS
     Route: 058
     Dates: start: 2008

REACTIONS (4)
  - Hepatic cancer [Recovered/Resolved]
  - Optic ischaemic neuropathy [Not Recovered/Not Resolved]
  - Visual acuity reduced [Not Recovered/Not Resolved]
  - Hyperglycaemia [Recovered/Resolved]
